FAERS Safety Report 5024633-7 (Version None)
Quarter: 2006Q2

REPORT INFORMATION
  Report Type: 
  Country: None (occurrence: None)
  Receive Date: 20060427
  Receipt Date: 20050630
  Transmission Date: 20061013
  Serious: Yes (Hospitalization)
  Sender: FDA-Public Use
  Company Number: US-JNJFOC-20050700551

PATIENT
  Age: 79 Year
  Sex: Female

DRUGS (1)
  1. GALANTAMINE HYDROBROMIDE [Suspect]
     Indication: VASCULAR DEMENTIA
     Dosage: 8 MG, 2 IN 1 DAY, ORAL
     Route: 048
     Dates: start: 20010101, end: 20040401

REACTIONS (5)
  - ANOREXIA [None]
  - COGNITIVE DETERIORATION [None]
  - FALL [None]
  - INCONTINENCE [None]
  - SPINAL COMPRESSION FRACTURE [None]
